FAERS Safety Report 11283899 (Version 1)
Quarter: 2015Q3

REPORT INFORMATION
  Report Type: Spontaneous
  Country: FR (occurrence: FR)
  Receive Date: 20150720
  Receipt Date: 20150720
  Transmission Date: 20151125
  Serious: Yes (Other)
  Sender: FDA-Public Use
  Company Number: ALCN2015FR004436

PATIENT
  Age: 60 Year
  Sex: Female

DRUGS (1)
  1. TRAVATAN [Suspect]
     Active Substance: TRAVOPROST
     Indication: GLAUCOMA
     Dosage: 1 GTT, QD
     Route: 047
     Dates: start: 2015

REACTIONS (3)
  - Dyspnoea [Unknown]
  - Dysphonia [Unknown]
  - Laryngeal discomfort [Unknown]

NARRATIVE: CASE EVENT DATE: 20150405
